FAERS Safety Report 8572547-8 (Version None)
Quarter: 2012Q3

REPORT INFORMATION
  Report Type: 
  Country: None (occurrence: None)
  Receive Date: 20120806
  Receipt Date: 20120731
  Transmission Date: 20120928
  Serious: Yes (Hospitalization)
  Sender: FDA-Public Use
  Company Number: DE-ROCHE-1092261

PATIENT
  Sex: Male
  Weight: 61.7 kg

DRUGS (2)
  1. VISMODEGIB [Suspect]
     Indication: HEAD AND NECK CANCER
     Dosage: LAST DOSE PRIOR TO SAE: 23/JUL/2012
     Route: 048
     Dates: start: 20120507, end: 20120724
  2. VISMODEGIB [Suspect]
     Route: 048
     Dates: start: 20120730

REACTIONS (1)
  - CEREBROVASCULAR ACCIDENT [None]
